FAERS Safety Report 13265633 (Version 1)
Quarter: 2017Q1

REPORT INFORMATION
  Report Type: Spontaneous
  Country: US (occurrence: US)
  Receive Date: 20170223
  Receipt Date: 20170223
  Transmission Date: 20170428
  Serious: Yes (Other)
  Sender: FDA-Public Use
  Company Number: US-HQ SPECIALTY-US-2016INT000094

PATIENT
  Age: 52 Year
  Sex: Female

DRUGS (19)
  1. DOXIL [Suspect]
     Active Substance: DOXORUBICIN HYDROCHLORIDE
     Indication: OVARIAN CANCER STAGE III
     Dosage: UNK
     Dates: start: 201208
  2. GEMCITABINE [Suspect]
     Active Substance: GEMCITABINE\GEMCITABINE HYDROCHLORIDE
     Dosage: LOW-DOSE
     Dates: start: 201501, end: 201509
  3. BEVACIZUMAB [Suspect]
     Active Substance: BEVACIZUMAB
     Indication: OVARIAN CANCER STAGE III
     Dosage: UNK
     Dates: start: 201208
  4. BEVACIZUMAB [Suspect]
     Active Substance: BEVACIZUMAB
     Dosage: UNK
     Dates: start: 201412
  5. AVASTIN                            /00848101/ [Suspect]
     Active Substance: SIMVASTATIN
     Indication: OVARIAN CANCER STAGE III
     Dosage: LOW-DOSE
     Dates: start: 201501
  6. CARBOPLATINUM [Suspect]
     Active Substance: CARBOPLATIN
     Dosage: LOW-DOSE
     Dates: start: 201501, end: 201509
  7. IRINOTECAN [Suspect]
     Active Substance: IRINOTECAN
     Dosage: LOW-DOSE
     Dates: start: 201501, end: 201509
  8. TAXOL [Suspect]
     Active Substance: PACLITAXEL
     Dosage: WEEKLY
     Route: 042
  9. GEMCITABINE [Suspect]
     Active Substance: GEMCITABINE\GEMCITABINE HYDROCHLORIDE
     Indication: OVARIAN CANCER STAGE III
     Dosage: UNK
     Dates: start: 201303
  10. IRINOTECAN [Suspect]
     Active Substance: IRINOTECAN
     Indication: OVARIAN CANCER STAGE III
     Dosage: UNK
     Dates: start: 201411
  11. TAXOL [Suspect]
     Active Substance: PACLITAXEL
     Indication: OVARIAN CANCER STAGE III
     Dosage: X1
     Route: 042
  12. CARBO /00740901/ [Suspect]
     Active Substance: CARBOPLATIN
     Indication: OVARIAN CANCER STAGE III
     Dosage: X1
     Route: 042
  13. ALIMTA [Suspect]
     Active Substance: PEMETREXED DISODIUM
     Indication: OVARIAN CANCER STAGE III
     Dosage: UNK
     Dates: start: 201306
  14. CARBOPLATINUM [Suspect]
     Active Substance: CARBOPLATIN
     Indication: OVARIAN CANCER STAGE III
     Dosage: UNK
  15. TOPROL XL [Suspect]
     Active Substance: METOPROLOL SUCCINATE
     Indication: OVARIAN CANCER STAGE III
     Dosage: UNK
     Dates: start: 201412
  16. CYTOXAN [Suspect]
     Active Substance: CYCLOPHOSPHAMIDE
     Indication: OVARIAN CANCER STAGE III
     Dosage: LOW-DOSE
     Dates: start: 201501, end: 201509
  17. 5-FU                               /00098801/ [Suspect]
     Active Substance: FLUOROURACIL
     Indication: OVARIAN CANCER STAGE III
     Dosage: LOW-DOSE
     Dates: start: 201501, end: 201509
  18. OLAPARIB [Suspect]
     Active Substance: OLAPARIB
     Indication: OVARIAN CANCER STAGE III
     Dosage: UNK
  19. TAXOL [Suspect]
     Active Substance: PACLITAXEL
     Dosage: X2 CYCLES
     Route: 042

REACTIONS (1)
  - Disease progression [Unknown]
